FAERS Safety Report 8514184-7 (Version None)
Quarter: 2012Q3

REPORT INFORMATION
  Report Type: 
  Country: None (occurrence: None)
  Receive Date: 20120717
  Receipt Date: 20120710
  Transmission Date: 20120928
  Serious: Yes (Other)
  Sender: FDA-Public Use
  Company Number: ES-PFIZER INC-2012165757

PATIENT
  Age: 47 Year
  Sex: Female

DRUGS (2)
  1. CISPLATIN [Suspect]
     Indication: CERVIX CARCINOMA
     Dosage: 80.5 MG, CYCLIC
     Route: 042
     Dates: start: 20120612, end: 20120612
  2. MANNITOL MEIN [Suspect]
     Indication: DIURETIC THERAPY
     Dosage: 250 ML, SINGLE
     Route: 042
     Dates: start: 20120612, end: 20120612

REACTIONS (6)
  - TONGUE OEDEMA [None]
  - PARAESTHESIA [None]
  - RASH ERYTHEMATOUS [None]
  - SPEECH DISORDER [None]
  - DRY MOUTH [None]
  - FACE OEDEMA [None]
